FAERS Safety Report 19507414 (Version 4)
Quarter: 2021Q3

REPORT INFORMATION
  Report Type: Spontaneous
  Country: US (occurrence: US)
  Receive Date: 20210708
  Receipt Date: 20210921
  Transmission Date: 20211014
  Serious: Yes (Other)
  Sender: FDA-Public Use
  Company Number: US-GLAXOSMITHKLINE-US2021000230

PATIENT
  Age: 76 Year
  Sex: Female

DRUGS (4)
  1. ZEJULA [Suspect]
     Active Substance: NIRAPARIB
     Indication: MALIGNANT PERITONEAL NEOPLASM
     Dosage: 200 MG, QD
     Route: 048
     Dates: start: 20210622
  2. ZEJULA [Suspect]
     Active Substance: NIRAPARIB
     Dosage: 100 MG, QD
  3. ZEJULA [Suspect]
     Active Substance: NIRAPARIB
     Dosage: 100 MG, QD
     Route: 048
  4. COMPAZINE [Suspect]
     Active Substance: PROCHLORPERAZINE MALEATE
     Indication: NAUSEA
     Dosage: UNK
     Dates: start: 202106

REACTIONS (9)
  - Diarrhoea [Unknown]
  - Tumour marker increased [Unknown]
  - Nausea [Unknown]
  - Gastric infection [Unknown]
  - Blood pressure increased [Unknown]
  - Cognitive disorder [Unknown]
  - Vomiting [Unknown]
  - Tremor [Unknown]
  - Personality change due to a general medical condition [Unknown]

NARRATIVE: CASE EVENT DATE: 202106
